FAERS Safety Report 7065877-2 (Version None)
Quarter: 2010Q4

REPORT INFORMATION
  Report Type: 
  Country: None (occurrence: None)
  Receive Date: 20101027
  Receipt Date: 20101019
  Transmission Date: 20110411
  Serious: Yes (Death, Life-Threatening, Hospitalization)
  Sender: FDA-Public Use
  Company Number: FR-B.I. PHARMACEUTICALS,INC./RIDGEFIELD-2010-FF-00053FF

PATIENT
  Sex: Female
  Weight: 75 kg

DRUGS (9)
  1. PRADAXA [Suspect]
     Indication: HIP ARTHROPLASTY
     Dosage: 220 MG
     Route: 048
     Dates: start: 20091215, end: 20091217
  2. LOVENOX [Suspect]
     Indication: PULMONARY EMBOLISM
     Dosage: 1.4 ML
     Route: 058
     Dates: start: 20091217, end: 20091218
  3. SARTAN [Concomitant]
     Indication: HYPERTENSION
  4. AMINOPHYLLINE [Concomitant]
     Indication: ASTHMA
  5. LASIX [Concomitant]
  6. NEXIUM [Concomitant]
  7. PERFALGAN [Concomitant]
  8. MORPHINE [Concomitant]
  9. ACUPAN [Concomitant]

REACTIONS (13)
  - ABDOMINAL SEPSIS [None]
  - ACTIVATED PARTIAL THROMBOPLASTIN TIME PROLONGED [None]
  - ANAEMIA [None]
  - DYSPNOEA [None]
  - GASTROINTESTINAL ISCHAEMIA [None]
  - HYPERKALAEMIA [None]
  - HYPOTENSION [None]
  - HYPOVOLAEMIC SHOCK [None]
  - METABOLIC ACIDOSIS [None]
  - OLIGURIA [None]
  - PROTHROMBIN LEVEL DECREASED [None]
  - RENAL FAILURE [None]
  - TACHYCARDIA [None]
